FAERS Safety Report 5525287-3 (Version None)
Quarter: 2007Q4

REPORT INFORMATION
  Report Type: 
  Country: None (occurrence: None)
  Receive Date: 20071126
  Receipt Date: 20071121
  Transmission Date: 20080405
  Serious: Yes (Hospitalization, Other)
  Sender: FDA-Public Use
  Company Number: FR-BRISTOL-MYERS SQUIBB COMPANY-13991047

PATIENT
  Age: 90 Year
  Sex: Female

DRUGS (13)
  1. COUMADIN [Suspect]
     Dosage: 4 MG EVERY ODD DAY. STOPPED ON 12-AUG-2007. RECHALLENGED AT LOW DOSE ON 14-NOV-2007Q
     Dates: end: 20070812
  2. RAMIPRIL [Suspect]
     Indication: HYPERTENSION
     Dates: end: 20070811
  3. PANTOPRAZOLE SODIUM [Suspect]
     Dates: end: 20070813
  4. FORLAX [Concomitant]
  5. CACIT [Concomitant]
  6. CORTANCYL [Concomitant]
  7. HEMIGOXINE NATIVELLE [Concomitant]
  8. CARDENSIEL [Concomitant]
  9. MOPRAL [Concomitant]
  10. FOSAVANCE [Concomitant]
  11. DIFFU-K [Concomitant]
  12. HEXAMIDINE [Concomitant]
  13. EFFERALGAN [Concomitant]

REACTIONS (3)
  - FALL [None]
  - HYPONATRAEMIA [None]
  - OVERDOSE [None]
